FAERS Safety Report 15618156 (Version 3)
Quarter: 2022Q1

REPORT INFORMATION
  Report Type: Spontaneous
  Country: US (occurrence: US)
  Receive Date: 20181114
  Receipt Date: 20220217
  Transmission Date: 20220423
  Serious: No
  Sender: FDA-Public Use
  Company Number: US-PFIZER INC-2018458506

PATIENT
  Age: 71 Year
  Sex: Female
  Weight: 53.52 kg

DRUGS (1)
  1. XELJANZ XR [Suspect]
     Active Substance: TOFACITINIB CITRATE
     Indication: Rheumatoid arthritis
     Dosage: 11 MG, 1X/DAY
     Route: 048
     Dates: start: 201810, end: 20181029

REACTIONS (2)
  - Urticaria [Not Recovered/Not Resolved]
  - Neuralgia [Unknown]

NARRATIVE: CASE EVENT DATE: 20181001
